FAERS Safety Report 12782234 (Version 1)
Quarter: 2016Q3

REPORT INFORMATION
  Report Type: Spontaneous
  Country: US (occurrence: US)
  Receive Date: 20160927
  Receipt Date: 20160927
  Transmission Date: 20161109
  Serious: Yes (Other)
  Sender: FDA-Public Use
  Company Number: US-BEH-200610840

PATIENT
  Age: 53 Year
  Sex: Female
  Weight: 76.66 kg

DRUGS (3)
  1. VIVAGLOBIN [Suspect]
     Active Substance: HUMAN IMMUNOGLOBULIN G
     Indication: IMMUNODEFICIENCY COMMON VARIABLE
     Route: 058
     Dates: start: 20061021, end: 20061021
  2. VIVAGLOBIN [Suspect]
     Active Substance: HUMAN IMMUNOGLOBULIN G
     Route: 058
     Dates: start: 20061024, end: 20061024
  3. VIVAGLOBIN [Suspect]
     Active Substance: HUMAN IMMUNOGLOBULIN G
     Route: 058
     Dates: start: 20061107, end: 20061107

REACTIONS (12)
  - Pruritus [Unknown]
  - Throat tightness [Unknown]
  - Pallor [Unknown]
  - Anaphylactoid reaction [Unknown]
  - Wheezing [Unknown]
  - Hypotension [Unknown]
  - Pharyngeal oedema [Unknown]
  - Chest discomfort [Unknown]
  - Dyspnoea [Unknown]
  - Nausea [Unknown]
  - Breath sounds abnormal [Unknown]
  - Tremor [Unknown]

NARRATIVE: CASE EVENT DATE: 20061107
